FAERS Safety Report 15948292 (Version 1)
Quarter: 2019Q1

REPORT INFORMATION
  Report Type: Spontaneous
  Country: BR (occurrence: BR)
  Receive Date: 20190211
  Receipt Date: 20190211
  Transmission Date: 20190417
  Serious: Yes (Death, Hospitalization)
  Sender: FDA-Public Use
  Company Number: BR-CELGENEUS-BRA-20190107160

PATIENT
  Age: 68 Year
  Sex: Male

DRUGS (5)
  1. VIDAZA [Suspect]
     Active Substance: AZACITIDINE
     Indication: MYELODYSPLASTIC SYNDROME
     Route: 041
     Dates: start: 20181210, end: 20190107
  2. FUROSEMIDE. [Concomitant]
     Active Substance: FUROSEMIDE
     Indication: BLOOD PRESSURE MEASUREMENT
     Route: 048
  3. PROSTAFLUX [Concomitant]
     Indication: PROSTATIC DISORDER
     Route: 048
  4. SPIRONOLACTONE. [Concomitant]
     Active Substance: SPIRONOLACTONE
     Indication: CARDIAC DISORDER
     Route: 065
  5. LOSARTAN. [Concomitant]
     Active Substance: LOSARTAN
     Indication: BLOOD PRESSURE MEASUREMENT
     Route: 048

REACTIONS (12)
  - Fatigue [Unknown]
  - Immune system disorder [Unknown]
  - Headache [Unknown]
  - Death [Fatal]
  - Pyrexia [Unknown]
  - Nausea [Unknown]
  - Oedema [Unknown]
  - Urine output decreased [Unknown]
  - Pneumonia [Unknown]
  - Constipation [Unknown]
  - Memory impairment [Unknown]
  - Infection [Unknown]

NARRATIVE: CASE EVENT DATE: 20190114
